FAERS Safety Report 25907751 (Version 1)
Quarter: 2025Q4

REPORT INFORMATION
  Report Type: Report from Study
  Country: US (occurrence: US)
  Receive Date: 20251010
  Receipt Date: 20251010
  Transmission Date: 20260117
  Serious: Yes (Death, Other)
  Sender: SANOFI AVENTIS
  Company Number: US-SA-2025SA041235

PATIENT
  Age: 75 Year
  Sex: Male

DRUGS (1)
  1. ISATUXIMAB-IRFC [Suspect]
     Active Substance: ISATUXIMAB-IRFC
     Indication: Plasma cell myeloma
     Dosage: 695 DOSE PER KG
     Route: 042
     Dates: start: 20241111

REACTIONS (8)
  - Death [Fatal]
  - Atrial fibrillation [Recovering/Resolving]
  - Renal failure [Recovering/Resolving]
  - Visual impairment [Recovering/Resolving]
  - Condition aggravated [Recovering/Resolving]
  - Malaise [Recovering/Resolving]
  - Cancer screening abnormal [Recovering/Resolving]
  - Fatigue [Recovering/Resolving]

NARRATIVE: CASE EVENT DATE: 20250201
